FAERS Safety Report 5787669-4 (Version None)
Quarter: 2008Q2

REPORT INFORMATION
  Report Type: 
  Country: None (occurrence: None)
  Receive Date: 20080623
  Receipt Date: 20080623
  Transmission Date: 20081010
  Serious: Yes (Other)
  Sender: FDA-Public Use
  Company Number: None

PATIENT
  Age: 57 Year
  Sex: Female
  Weight: 93.8946 kg

DRUGS (2)
  1. METOPROLOL SUCCINATE [Suspect]
     Indication: HEART RATE IRREGULAR
     Dosage: 1 TABLET TID PO
     Route: 048
     Dates: start: 20080616, end: 20080620
  2. METOPROLOL SUCCINATE [Suspect]
     Indication: HYPERTENSION
     Dosage: 1 TABLET TID PO
     Route: 048
     Dates: start: 20080616, end: 20080620

REACTIONS (4)
  - BLOOD PRESSURE INCREASED [None]
  - HEART RATE INCREASED [None]
  - THERAPEUTIC RESPONSE UNEXPECTED WITH DRUG SUBSTITUTION [None]
  - VENTRICULAR EXTRASYSTOLES [None]
